FAERS Safety Report 4274831-5 (Version None)
Quarter: 2004Q1

REPORT INFORMATION
  Report Type: 
  Country: None (occurrence: None)
  Receive Date: 20040116
  Receipt Date: 20040106
  Transmission Date: 20041129
  Serious: Yes (Hospitalization)
  Sender: FDA-Public Use
  Company Number: 2004-BP-00050RO

PATIENT
  Age: 44 Year
  Sex: Male

DRUGS (3)
  1. PREDNISONE TAB [Suspect]
     Indication: PROPHYLAXIS AGAINST TRANSPLANT REJECTION
     Dosage: 5 MG/DAY (5 MG), PO
     Route: 048
     Dates: start: 20030411
  2. BMS224818 (MBS224818-INVESTIGATIONAL) [Suspect]
     Indication: PROPHYLAXIS AGAINST TRANSPLANT REJECTION
     Dosage: 5 MG/KG, IV
     Route: 042
     Dates: start: 20020629
  3. MYCOPHENOLATE MOFETIL (MYCOPHENOLATE MOFETIL) [Suspect]
     Indication: PROPHYLAXIS AGAINST TRANSPLANT REJECTION
     Dosage: 2000 MG/DAY, PO
     Route: 048
     Dates: start: 20020701

REACTIONS (1)
  - RETINAL DETACHMENT [None]
